FAERS Safety Report 17342076 (Version 1)
Quarter: 2020Q1

REPORT INFORMATION
  Report Type: Spontaneous
  Country: US (occurrence: US)
  Receive Date: 20200129
  Receipt Date: 20200129
  Transmission Date: 20200409
  Serious: No
  Sender: FDA-Public Use
  Company Number: US-ALLERGAN-1924328US

PATIENT
  Age: 75 Year
  Sex: Female

DRUGS (1)
  1. BOTOX [Suspect]
     Active Substance: ONABOTULINUMTOXINA
     Indication: MIGRAINE
     Dosage: UNK, SINGLE
     Dates: start: 20190218, end: 20190218

REACTIONS (16)
  - Blepharal pigmentation [Recovering/Resolving]
  - Swelling [Not Recovered/Not Resolved]
  - Migraine [Recovering/Resolving]
  - Neck pain [Unknown]
  - Joint stiffness [Recovered/Resolved]
  - Musculoskeletal stiffness [Unknown]
  - Pain [Unknown]
  - Vision blurred [Recovered/Resolved]
  - Influenza like illness [Unknown]
  - Quality of life decreased [Unknown]
  - Localised oedema [Recovering/Resolving]
  - Malaise [Unknown]
  - Chest pain [Unknown]
  - Sinus pain [Recovered/Resolved]
  - Fatigue [Unknown]
  - Headache [Unknown]

NARRATIVE: CASE EVENT DATE: 20190218
